FAERS Safety Report 15695317 (Version 2)
Quarter: 2018Q4

REPORT INFORMATION
  Report Type: Spontaneous
  Country: US (occurrence: US)
  Receive Date: 20181206
  Receipt Date: 20181214
  Transmission Date: 20190205
  Serious: Yes (Other)
  Sender: FDA-Public Use
  Company Number: US-PFIZER INC-2018502933

PATIENT
  Age: 9 Decade
  Sex: Male

DRUGS (7)
  1. EPHEDRINE SULFATE. [Suspect]
     Active Substance: EPHEDRINE SULFATE
     Indication: BLOOD PRESSURE DECREASED
     Dosage: UNK
     Route: 065
  2. EPHEDRINE SULFATE. [Suspect]
     Active Substance: EPHEDRINE SULFATE
     Indication: HAEMODYNAMIC INSTABILITY
  3. PHENYLEPHRINE HCL [Suspect]
     Active Substance: PHENYLEPHRINE HYDROCHLORIDE
     Indication: BLOOD PRESSURE DECREASED
     Dosage: UNK
  4. SEVOFLURANE. [Concomitant]
     Active Substance: SEVOFLURANE
     Indication: ANAESTHESIA
     Dosage: UNK
     Route: 065
  5. EPINEPHRINE. [Suspect]
     Active Substance: EPINEPHRINE
     Dosage: ARREST DOSE AFTER 1 ROUND OF CHEST COMPRESSIONS (ACTION TAKEN: SUBSEQUENT BOLUSES AND INFUSION TREAT
     Route: 065
  6. PHENYLEPHRINE HCL [Suspect]
     Active Substance: PHENYLEPHRINE HYDROCHLORIDE
     Indication: HAEMODYNAMIC INSTABILITY
  7. EPINEPHRINE. [Suspect]
     Active Substance: EPINEPHRINE
     Indication: BLOOD PRESSURE DECREASED
     Dosage: WITH EPHEDRINE AND PHENYLEPHRINE (ACTION TAKEN: SUBSEQUENT BOLUSES AND INFUSION TREATMENT)
     Route: 065

REACTIONS (1)
  - Drug resistance [Unknown]
